FAERS Safety Report 20338066 (Version 4)
Quarter: 2022Q1

REPORT INFORMATION
  Report Type: Other
  Country: AU (occurrence: AU)
  Receive Date: 20220115
  Receipt Date: 20220329
  Transmission Date: 20220423
  Serious: Yes (Hospitalization)
  Sender: FDA-Public Use
  Company Number: AU-002147023-NVSC2021AU072008

PATIENT
  Age: 45 Year
  Sex: Female

DRUGS (5)
  1. OMALIZUMAB [Suspect]
     Active Substance: OMALIZUMAB
     Indication: Anaphylactic reaction
     Route: 065
  2. EPINEPHRINE [Concomitant]
     Active Substance: EPINEPHRINE
     Route: 065
  3. KETOTIFEN [Concomitant]
     Active Substance: KETOTIFEN
     Route: 065
  4. CETIRIZINE [Concomitant]
     Active Substance: CETIRIZINE HYDROCHLORIDE
     Route: 065
  5. ATROVENT [Concomitant]
     Active Substance: IPRATROPIUM BROMIDE
     Route: 065

REACTIONS (6)
  - Anaphylactic reaction [Unknown]
  - Abdominal discomfort [Unknown]
  - Anxiety [Unknown]
  - Depression [Unknown]
  - Product dose omission issue [Unknown]
  - Inappropriate schedule of product administration [Unknown]

NARRATIVE: CASE EVENT DATE: 20211201
